FAERS Safety Report 10755837 (Version 5)
Quarter: 2015Q3

REPORT INFORMATION
  Report Type: Report from Study
  Country: US (occurrence: US)
  Receive Date: 20150202
  Receipt Date: 20150909
  Transmission Date: 20151125
  Serious: Yes (Other)
  Sender: FDA-Public Use
  Company Number: US-SA-2014SA105190

PATIENT
  Age: 52 Year
  Sex: Female

DRUGS (11)
  1. AUBAGIO [Suspect]
     Active Substance: TERIFLUNOMIDE
     Indication: MULTIPLE SCLEROSIS
     Route: 048
     Dates: start: 20140714
  2. ATIVAN [Concomitant]
     Active Substance: LORAZEPAM
     Indication: ANXIETY
     Dosage: 1/2-1 MG
  3. VITAMIN D [Concomitant]
     Active Substance: CHOLECALCIFEROL
  4. HYDROCHLOROTHIAZIDE. [Concomitant]
     Active Substance: HYDROCHLOROTHIAZIDE
     Indication: DIURETIC THERAPY
  5. MAGNESIUM [Concomitant]
     Active Substance: MAGNESIUM
  6. AUBAGIO [Suspect]
     Active Substance: TERIFLUNOMIDE
     Indication: MULTIPLE SCLEROSIS
     Route: 048
  7. CELEXA [Concomitant]
     Active Substance: CITALOPRAM HYDROBROMIDE
     Indication: ANTIDEPRESSANT THERAPY
  8. CONCERTA [Concomitant]
     Active Substance: METHYLPHENIDATE HYDROCHLORIDE
     Indication: MULTIPLE SCLEROSIS
  9. CALCIUM [Concomitant]
     Active Substance: CALCIUM
  10. CONCERTA [Concomitant]
     Active Substance: METHYLPHENIDATE HYDROCHLORIDE
     Indication: FATIGUE
  11. TRAMADOL. [Concomitant]
     Active Substance: TRAMADOL
     Indication: PAIN

REACTIONS (25)
  - Gait disturbance [Unknown]
  - Chest discomfort [Unknown]
  - Hair texture abnormal [Unknown]
  - Feeling abnormal [Unknown]
  - Alopecia [Recovered/Resolved]
  - Knee operation [Unknown]
  - Poor quality sleep [Recovering/Resolving]
  - Irritability [Recovering/Resolving]
  - Weight increased [Not Recovered/Not Resolved]
  - Multiple sclerosis relapse [Unknown]
  - Hypogammaglobulinaemia [Recovering/Resolving]
  - Abdominal discomfort [Unknown]
  - Band sensation [Unknown]
  - Pain [Recovering/Resolving]
  - Quality of life decreased [Unknown]
  - Arthralgia [Unknown]
  - Musculoskeletal stiffness [Recovering/Resolving]
  - Nausea [Unknown]
  - Diarrhoea [Unknown]
  - Drug dose omission [Unknown]
  - Infection [Unknown]
  - Malaise [Unknown]
  - Fatigue [Unknown]
  - Influenza [Unknown]
  - Blood pressure increased [Not Recovered/Not Resolved]

NARRATIVE: CASE EVENT DATE: 2010
